FAERS Safety Report 15183343 (Version 20)
Quarter: 2020Q1

REPORT INFORMATION
  Report Type: Report from Study
  Country: DE (occurrence: DE)
  Receive Date: 20180723
  Receipt Date: 20200318
  Transmission Date: 20200409
  Serious: Yes (Death, Life-Threatening, Hospitalization, Other)
  Sender: FDA-Public Use
  Company Number: GB-MYLANLABS-2018M1053534

PATIENT
  Age: 73 Year
  Sex: Female
  Weight: 69 kg

DRUGS (132)
  1. METOCLOPRAMIDE. [Suspect]
     Active Substance: METOCLOPRAMIDE
     Dosage: 75 MILLIGRAM, QD
     Route: 048
     Dates: start: 20010704, end: 20010712
  2. BISOPROLOL [Suspect]
     Active Substance: BISOPROLOL
     Dosage: 8 MG, EVERY 29 DAYS
     Route: 048
     Dates: start: 20010616, end: 20010714
  3. CLORAZEPATE DIPOTASSIUM. [Suspect]
     Active Substance: CLORAZEPATE DIPOTASSIUM
     Dosage: UNK
     Route: 048
  4. HALDOL [Suspect]
     Active Substance: HALOPERIDOL
     Indication: RESTLESSNESS
     Dosage: 3 DOSAGE FORM, QD
     Route: 016
     Dates: start: 20010713, end: 20010714
  5. EUNERPAN [Suspect]
     Active Substance: MELPERONE HYDROCHLORIDE
     Indication: RESTLESSNESS
     Dosage: 16 ML (DAILY DOSE), , ORAL
     Route: 048
     Dates: start: 20010706, end: 20010712
  6. DECORTIN [Suspect]
     Active Substance: PREDNISONE
     Indication: DYSPNOEA
     Dosage: 50 MG, QD, DOSE RANGED FROM 80-105 MG DAILY
     Route: 042
     Dates: start: 20010703, end: 20010703
  7. CIPROFLOXACIN HYDROCHLORIDE. [Suspect]
     Active Substance: CIPROFLOXACIN HYDROCHLORIDE
     Dosage: 250 MILLIGRAM, QD (250 MG, BID)
     Route: 048
     Dates: start: 20010710, end: 20010711
  8. NOVODIGAL (.BETA.-ACETYLDIGOXIN) [Suspect]
     Active Substance: .BETA.-ACETYLDIGOXIN
     Indication: CORONARY ARTERY DISEASE
     Dosage: 1 DOSAGE FORM, QD
     Route: 048
     Dates: start: 20010703
  9. DIGOXIN. [Suspect]
     Active Substance: DIGOXIN
     Indication: CORONARY ARTERY DISEASE
     Dosage: 0.2 MG (DAILY DOSE), ORAL
     Route: 048
     Dates: start: 20010703, end: 20010714
  10. MOLSIDOMINE [Suspect]
     Active Substance: MOLSIDOMINE
     Dosage: 16 MILLIGRAM, BID
     Route: 048
     Dates: start: 20010703
  11. CEFTRIAXONE SODIUM. [Suspect]
     Active Substance: CEFTRIAXONE SODIUM
     Dosage: 2 GRAM, BID
     Route: 042
     Dates: start: 20010629, end: 20010703
  12. CEFTRIAXONE SODIUM. [Suspect]
     Active Substance: CEFTRIAXONE SODIUM
     Dosage: DOSE RANGED FROM 20-30 MG DAILY DRUG STRUCTURE
     Route: 042
     Dates: start: 20010729
  13. PANTOZOL [Suspect]
     Active Substance: PANTOPRAZOLE SODIUM
     Indication: PROPHYLAXIS
  14. LANTUS [Suspect]
     Active Substance: INSULIN GLARGINE
     Indication: DIABETES MELLITUS
     Dosage: 16 INTERNATIONAL UNIT, QD
     Route: 058
     Dates: start: 20010616, end: 20010629
  15. LEXOTANIL [Concomitant]
     Active Substance: BROMAZEPAM
     Dosage: 2 MILLIGRAM
     Route: 065
  16. METOCLOPRAMIDE. [Suspect]
     Active Substance: METOCLOPRAMIDE
     Indication: NAUSEA
     Dosage: 7 MILLIGRAM, QD
     Route: 048
     Dates: start: 20010704, end: 20010712
  17. CLORAZEPATE DIPOTASSIUM. [Suspect]
     Active Substance: CLORAZEPATE DIPOTASSIUM
     Indication: RESTLESSNESS
     Dosage: 10 MG, QD
     Route: 048
     Dates: start: 20010710, end: 20010714
  18. NORVASC [Suspect]
     Active Substance: AMLODIPINE BESYLATE
     Indication: CORONARY ARTERY DISEASE
     Dosage: 10 MG, QD (5 MG, BID)
     Route: 048
     Dates: start: 20010703, end: 20010714
  19. FRAGMIN [Suspect]
     Active Substance: DALTEPARIN SODIUM
     Indication: THROMBOSIS PROPHYLAXIS
     Dosage: 2500 IU (DAILY DOSE),Q12D
     Route: 058
     Dates: start: 20010703, end: 20010714
  20. LASIX [Suspect]
     Active Substance: FUROSEMIDE
     Dosage: 120 MG, QD, DOSE RANGED FROM 80 MG-120 MG
     Route: 042
     Dates: start: 20010703, end: 20010714
  21. MOLSIDOMINE [Suspect]
     Active Substance: MOLSIDOMINE
     Dosage: 16 MILLIGRAM,8 MG, QD, 16MG-8MG (8 MG, (DOSE REDUCED FROM 16 TO
     Route: 048
     Dates: start: 20010703, end: 20010714
  22. MOLSIDOMINE [Suspect]
     Active Substance: MOLSIDOMINE
     Dosage: 8 MILLIGRAM, QD,(DOSE REDUCED FROM 16 TO 8 MG DAILY)
     Route: 048
     Dates: start: 20010703, end: 20010704
  23. MOLSIDOMINE [Suspect]
     Active Substance: MOLSIDOMINE
     Dosage: 16 MG, EVERY 12 DAYS
     Route: 048
     Dates: start: 20010714
  24. CARBIMAZOLE [Suspect]
     Active Substance: CARBIMAZOLE
     Dosage: UNK
     Route: 065
     Dates: start: 20010621, end: 20010714
  25. PANTOZOL [Suspect]
     Active Substance: PANTOPRAZOLE SODIUM
     Indication: PROPHYLAXIS
     Dosage: 80 MILLIGRAM, QD (DOSE DECREASED FROM 80 TO 40 MG DIALY)
     Route: 048
     Dates: start: 20010616
  26. PANTOZOL [Suspect]
     Active Substance: PANTOPRAZOLE SODIUM
     Dosage: 40 MILLIGRAM, QD, DOSE DECREASED FROM 80 TO 40 MG DAILY) MOST RECENT DOSE:14/JUL/2001
     Route: 048
     Dates: start: 20010614
  27. HALOPERIDOL. [Suspect]
     Active Substance: HALOPERIDOL
     Dosage: UNK
     Route: 048
     Dates: start: 20010713, end: 20010714
  28. POTASSIUM CHLORIDE. [Concomitant]
     Active Substance: POTASSIUM CHLORIDE
     Dosage: 1500 MILLIGRAM, BID (3000 MG,QD),1500 MG, Q12D
     Route: 048
     Dates: start: 20010703, end: 20010714
  29. ISOSORBIDE MONONITRATE. [Suspect]
     Active Substance: ISOSORBIDE MONONITRATE
     Indication: CORONARY ARTERY DISEASE
     Dosage: 1 DOSAGE FORM, QD
     Route: 048
     Dates: start: 20010703, end: 20010714
  30. AMLODIPINE [Suspect]
     Active Substance: AMLODIPINE BESYLATE
     Indication: CORONARY ARTERY DISEASE
     Dosage: 10 MILLIGRAM, QD
     Route: 048
     Dates: start: 20010703, end: 20010714
  31. CLORAZEPATE DIPOTASSIUM. [Suspect]
     Active Substance: CLORAZEPATE DIPOTASSIUM
     Indication: RESTLESSNESS
     Dosage: 10 MILLIGRAM, QD
     Route: 048
     Dates: start: 20010710, end: 20010714
  32. CIPROFLOXACIN HYDROCHLORIDE. [Suspect]
     Active Substance: CIPROFLOXACIN HYDROCHLORIDE
     Dosage: 250 MILLIGRAM, BID,LAST DOSE ON 11/JUL/2001
     Route: 048
     Dates: start: 20010628, end: 20010711
  33. NOVODIGAL (.BETA.-ACETYLDIGOXIN) [Suspect]
     Active Substance: .BETA.-ACETYLDIGOXIN
     Dosage: 2 MILLIGRAM, QD,1 DF, DAILY
     Route: 048
     Dates: start: 20010703, end: 20010714
  34. NOVODIGAL (.BETA.-ACETYLDIGOXIN) [Suspect]
     Active Substance: .BETA.-ACETYLDIGOXIN
     Dosage: 0.3 MILLIGRAM
     Route: 048
     Dates: start: 20010703, end: 20010714
  35. DECORTIN [Suspect]
     Active Substance: PREDNISONE
     Indication: DYSPNOEA
     Dosage: 50 MILLIGRAM, QD
     Dates: start: 20010703, end: 20010703
  36. METFORMIN HYDROCHLORIDE. [Suspect]
     Active Substance: METFORMIN HYDROCHLORIDE
     Dosage: 250 MILLIGRAM, EVERY 29 DAYS
     Route: 048
     Dates: start: 20010616, end: 20010714
  37. PANTOZOL [Suspect]
     Active Substance: PANTOPRAZOLE SODIUM
     Dosage: 40 MILLIGRAM, QD, DOSE DECREASED FROM 80 TO 40 MG DAILY) MOST RECENT DOSE:14/JUL/2001
     Route: 048
     Dates: start: 20010616, end: 20010714
  38. HALOPERIDOL. [Suspect]
     Active Substance: HALOPERIDOL
     Indication: RESTLESSNESS
     Dosage: UNK
     Route: 016
     Dates: start: 20010713, end: 20010714
  39. HALDOL [Suspect]
     Active Substance: HALOPERIDOL
     Indication: RESTLESSNESS
     Dosage: 3 GTT, QD DROP (1/12 MILLILITRE
     Route: 048
     Dates: start: 20010713, end: 20010714
  40. INSULIN GLARGINE [Concomitant]
     Active Substance: INSULIN GLARGINE
     Indication: DIABETES MELLITUS
     Dosage: UNK
     Route: 065
     Dates: start: 20010629
  41. METFORMIN [Suspect]
     Active Substance: METFORMIN HYDROCHLORIDE
     Indication: CORONARY ARTERY DISEASE
     Dosage: 7 MILLIGRAM, QD
     Route: 048
     Dates: start: 20010616, end: 20010714
  42. METOCLOPRAMIDE. [Suspect]
     Active Substance: METOCLOPRAMIDE
     Dosage: 7 MILLIGRAM, EVERY 9 DAY
     Route: 048
     Dates: start: 20010704, end: 20010712
  43. DRIED YEAST [Suspect]
     Active Substance: YEAST
     Indication: DIARRHOEA
     Dosage: 300 MILLIGRAM
     Route: 048
     Dates: start: 20010711, end: 20010714
  44. ACETYLSALICYLIC ACID [Suspect]
     Active Substance: ASPIRIN
     Indication: CORONARY ARTERY DISEASE
     Dosage: 100 MG (DAILY DOSE), ORAL,DOSE REDUCED FROM 16 TO 8 MY DAILY
     Route: 048
     Dates: start: 20010616, end: 20010714
  45. ACETYLSALICYLIC ACID [Suspect]
     Active Substance: ASPIRIN
     Dosage: UNK
  46. PARACETAMOL [Suspect]
     Active Substance: ACETAMINOPHEN
     Indication: PAIN
     Dosage: 500 MILLIGRAM, QD
     Route: 048
     Dates: start: 20010711, end: 20010711
  47. DECORTIN [Suspect]
     Active Substance: PREDNISONE
     Indication: RESTLESSNESS
  48. DIGOXIN. [Suspect]
     Active Substance: DIGOXIN
     Dosage: 0.3 MILLIGRAM, QD
     Route: 048
     Dates: start: 20010703, end: 20010714
  49. MOLSIDOMINE [Suspect]
     Active Substance: MOLSIDOMINE
     Indication: CORONARY ARTERY DISEASE
     Dosage: 8 MG, (DOSE REDUCED FROM 16 TO 8 MG DAILY)
     Route: 048
     Dates: start: 20010703, end: 20010714
  50. MOLSIDOMINE [Suspect]
     Active Substance: MOLSIDOMINE
     Dosage: UNK
     Route: 065
  51. AMPHOTERICIN B W/TETRACYCLINE [Suspect]
     Active Substance: AMPHOTERICIN B\TETRACYCLINE
     Indication: ANTIFUNGAL PROPHYLAXIS
     Dosage: 200 MILLIGRAM, QD, 200 MILLIGRAM, Q12D (UNK DOSE FORM STATED AS PIPETTES)
     Route: 048
     Dates: start: 20010703, end: 20010714
  52. CEFTRIAXONE SODIUM. [Suspect]
     Active Substance: CEFTRIAXONE SODIUM
     Dosage: 1 GRAM, BID, (2 G QD),MOST RECENT DOSE: 03/JUL/2001
     Route: 042
     Dates: start: 20010629, end: 20010703
  53. METFORMIN HYDROCHLORIDE. [Suspect]
     Active Substance: METFORMIN HYDROCHLORIDE
     Indication: CORONARY ARTERY DISEASE
     Dosage: UNK
     Route: 065
     Dates: start: 20010703
  54. CAPTOPRIL. [Suspect]
     Active Substance: CAPTOPRIL
     Dosage: UNK UNK, EVERY 29 DAYS
     Route: 048
     Dates: start: 20010616, end: 20010714
  55. TETRACYCLINE HYDROCHLORIDE. [Suspect]
     Active Substance: TETRACYCLINE HYDROCHLORIDE
     Indication: ANTIFUNGAL PROPHYLAXIS
     Dosage: 200 MILLIGRAM, QD
     Route: 048
     Dates: start: 20010703, end: 20010714
  56. CONCOR [Suspect]
     Active Substance: BISOPROLOL FUMARATE
     Dosage: 8 MILLIGRAM, EVERY 29 DAYS
     Route: 048
     Dates: start: 20010616, end: 20010714
  57. AMARYL [Suspect]
     Active Substance: GLIMEPIRIDE
     Indication: DIABETES MELLITUS
     Dosage: 3 MILLIGRAM, EVERY 18 DAYS
     Route: 048
     Dates: start: 20010616, end: 20010703
  58. CLORAZEPATE DIPOTASSIUM. [Suspect]
     Active Substance: CLORAZEPATE DIPOTASSIUM
     Indication: RESTLESSNESS
     Dosage: 10 MILLIGRAM
     Route: 048
     Dates: start: 20010710, end: 20010714
  59. KALIUM [Suspect]
     Active Substance: POTASSIUM CHLORIDE
     Indication: ELECTROLYTE IMBALANCE
     Dosage: 1500 MILLIGRAM, TID,(6000 MILLIGRAM, QD)
     Route: 048
     Dates: start: 20010703, end: 20010714
  60. BROMAZEPAM [Concomitant]
     Active Substance: BROMAZEPAM
     Indication: RESTLESSNESS
     Dosage: 2 MILLIGRAM
     Route: 048
     Dates: start: 20010713, end: 20010714
  61. LEXOTANIL [Concomitant]
     Active Substance: BROMAZEPAM
     Dosage: 1.5 MILLIGRAM, BID
     Route: 048
     Dates: start: 20010713, end: 20010714
  62. BISOPROLOL FUMARATE. [Concomitant]
     Active Substance: BISOPROLOL FUMARATE
     Indication: CORONARY ARTERY DISEASE
     Dosage: 5 MILLIGRAM
     Route: 048
  63. ISOSORBIDE MONONITRATE. [Suspect]
     Active Substance: ISOSORBIDE MONONITRATE
     Dosage: UNK
     Route: 048
     Dates: start: 20010703, end: 20010714
  64. ISOSORBIDE MONONITRATE. [Suspect]
     Active Substance: ISOSORBIDE MONONITRATE
     Dosage: 1 DF, DAILY
     Route: 048
     Dates: start: 20010703, end: 20010714
  65. CLOPIDOGREL BISULFATE. [Suspect]
     Active Substance: CLOPIDOGREL BISULFATE
     Indication: CORONARY ARTERY DISEASE
     Dosage: 75 MILLIGRAM, QD
     Route: 048
     Dates: start: 20010704, end: 20010714
  66. BISOPROLOL [Suspect]
     Active Substance: BISOPROLOL
     Indication: CORONARY ARTERY DISEASE
     Dosage: 5 MILLIGRAM, QD
     Route: 048
     Dates: start: 20010714, end: 20010714
  67. CLORAZEPATE DIPOTASSIUM. [Suspect]
     Active Substance: CLORAZEPATE DIPOTASSIUM
     Indication: RESTLESSNESS
     Dosage: 10 MG, DAILY
     Route: 048
     Dates: start: 20010710, end: 20010714
  68. CLOPIDOGREL BISULFATE. [Suspect]
     Active Substance: CLOPIDOGREL BISULFATE
     Indication: CORONARY ARTERY DISEASE
     Dosage: 75 MILLIGRAM, QD
     Route: 048
     Dates: start: 20010704, end: 20010714
  69. LASIX [Suspect]
     Active Substance: FUROSEMIDE
     Indication: HYPERTENSION
     Dosage: 80 MG (DAILY DOSE) 120 MG, DOSE RANGED FROM 80 MG-120 MG DAILY
     Route: 042
     Dates: start: 20010703, end: 20010714
  70. ATORVASTATIN CALCIUM. [Suspect]
     Active Substance: ATORVASTATIN CALCIUM
     Indication: HYPERLIPIDAEMIA
     Dosage: 20 MILLIGRAM, QD
     Route: 048
     Dates: start: 20010616, end: 20010713
  71. NOVODIGAL (.BETA.-ACETYLDIGOXIN) [Suspect]
     Active Substance: .BETA.-ACETYLDIGOXIN
     Dosage: UNK
     Route: 048
  72. MOLSIDOMINE [Suspect]
     Active Substance: MOLSIDOMINE
     Dosage: UNK UNK, QD,UNK,(8 MG,DOSEREDUCED FROM 16 TO8MG DAILY)
     Route: 048
     Dates: start: 20010703
  73. MOLSIDOMINE [Suspect]
     Active Substance: MOLSIDOMINE
     Dosage: 8 MILLIGRAM, BID
     Route: 048
     Dates: start: 20010703, end: 20010714
  74. AMPHOTERICIN B W/TETRACYCLINE [Suspect]
     Active Substance: AMPHOTERICIN B\TETRACYCLINE
     Indication: PROPHYLAXIS
     Dosage: 8 DOSAGE FORM, QD
     Route: 048
     Dates: start: 20010703, end: 20010714
  75. ROCEPHIN [Suspect]
     Active Substance: CEFTRIAXONE SODIUM
     Dosage: 1 GRAM, QD (1 G, BID)
     Route: 042
     Dates: start: 20010629, end: 20010703
  76. RAMIPRIL. [Suspect]
     Active Substance: RAMIPRIL
     Indication: CORONARY ARTERY DISEASE
     Dosage: 5 MILLIGRAM, QD
     Route: 048
     Dates: start: 20010616, end: 20010714
  77. HALDOL [Suspect]
     Active Substance: HALOPERIDOL
     Dosage: 1 DOSAGE FORM, QD (UNIT DOSE: 3 [DRP] UNK LAST DOSE ON 14/JUL/2001)
     Route: 048
     Dates: start: 20010713, end: 20010714
  78. HALDOL [Suspect]
     Active Substance: HALOPERIDOL
     Dosage: UNK
     Route: 048
     Dates: start: 20010713, end: 20010714
  79. AMPHOTERICIN B. [Suspect]
     Active Substance: AMPHOTERICIN B
     Indication: ANTIFUNGAL PROPHYLAXIS
     Dosage: 200 MILLIGRAM
     Route: 048
     Dates: start: 20100703, end: 20100714
  80. LEXOTANIL [Concomitant]
     Active Substance: BROMAZEPAM
     Dosage: 2 MILLIGRAM, BID (4 MILLIGRAM, QD)
     Route: 048
     Dates: start: 20010713, end: 20010714
  81. GLIMEPIRIDE. [Concomitant]
     Active Substance: GLIMEPIRIDE
     Indication: DIABETES MELLITUS
     Dosage: 3 MILLIGRAM, QD (3 MG, QD, EVERY DAYS)
     Route: 048
     Dates: start: 20010616, end: 20010703
  82. GLIMEPIRIDE. [Concomitant]
     Active Substance: GLIMEPIRIDE
     Dosage: 3 MILLIGRAM, QD
     Route: 048
     Dates: start: 20010703
  83. SODIUM PERCHLORATE [Concomitant]
     Active Substance: SODIUM PERCHLORATE
     Dosage: UNK
     Route: 048
     Dates: start: 20010618, end: 20010714
  84. AMLODIPINE [Suspect]
     Active Substance: AMLODIPINE BESYLATE
     Dosage: 5 MILLIGRAM
     Route: 048
     Dates: start: 20010703, end: 20010714
  85. CLORAZEPATE DIPOTASSIUM. [Suspect]
     Active Substance: CLORAZEPATE DIPOTASSIUM
     Dosage: UNK
     Route: 065
     Dates: start: 20010710
  86. PREDNISOLONE. [Suspect]
     Active Substance: PREDNISOLONE
     Indication: DYSPNOEA
     Dosage: 50 MG, QD, GALENICAL FORM:SOLUTION
     Route: 042
     Dates: start: 20010703, end: 20010703
  87. EUNERPAN [Suspect]
     Active Substance: MELPERONE HYDROCHLORIDE
     Dosage: 105 MG, 1D, (DOSE RANGED FROM 80-105 MG)
     Route: 048
     Dates: start: 20010706, end: 20010712
  88. DIGOXIN. [Suspect]
     Active Substance: DIGOXIN
     Dosage: 4 MILLIGRAM
     Route: 048
     Dates: start: 20010703, end: 20010714
  89. DIAZEPAM. [Suspect]
     Active Substance: DIAZEPAM
     Dosage: 5 MILLIGRAM,(TOTAL DAILY DOSE RANGED FROM 1376.8 MG TO 2065.2 MG)
     Route: 048
     Dates: start: 20010616, end: 20010703
  90. METFORMIN HYDROCHLORIDE. [Suspect]
     Active Substance: METFORMIN HYDROCHLORIDE
     Dosage: 7 MILLIGRAM
     Route: 048
     Dates: start: 20010616, end: 20010714
  91. CAPTOPRIL. [Suspect]
     Active Substance: CAPTOPRIL
     Indication: CORONARY ARTERY DISEASE
     Dosage: 1 DF, EVERY 29 DAYS 1MOL/ML
     Route: 048
     Dates: start: 20010616, end: 20010714
  92. CARBIMAZOLE [Suspect]
     Active Substance: CARBIMAZOLE
     Indication: HYPERTHYROIDISM
     Dosage: 20 MILLIGRAM, QD (DOSE RANGED FROM 20-30 MG DAILY)
     Route: 048
     Dates: start: 20010621, end: 20010714
  93. CARBIMAZOLE [Suspect]
     Active Substance: CARBIMAZOLE
     Dosage: 30 MG, (DOSE RANGED FROM 20-30 MG DAILY)
     Route: 048
     Dates: start: 20010621, end: 20010714
  94. CONCOR [Suspect]
     Active Substance: BISOPROLOL FUMARATE
     Indication: CORONARY ARTERY DISEASE
     Dosage: 5 MILLIGRAM, QD
     Route: 048
     Dates: end: 20010714
  95. PANTOPRAZOLE [Suspect]
     Active Substance: PANTOPRAZOLE
     Dosage: 80 MILLIGRAM, QD
     Route: 048
     Dates: end: 20010714
  96. PERENTEROL [Suspect]
     Active Substance: SACCHAROMYCES CEREVISIAE
     Indication: DIARRHOEA
     Dosage: 300 MILLIGRAM, QD, 100 TO 300 MG, DOSE RANGED FROM 80 MG-120 MG DAILY
     Route: 048
     Dates: start: 20010711, end: 20010714
  97. LEXOTANIL [Concomitant]
     Active Substance: BROMAZEPAM
     Indication: RESTLESSNESS
     Dosage: 3 MILLIGRAM, QD(1.5 MG, BID)
     Route: 048
     Dates: start: 20010713, end: 20010714
  98. POTASSIUM CHLORIDE. [Concomitant]
     Active Substance: POTASSIUM CHLORIDE
     Dosage: 1 DOSAGE FORM, 1 DF=2 UNITS NOS
     Route: 048
     Dates: start: 20010703, end: 20010714
  99. BISOPROLOL [Suspect]
     Active Substance: BISOPROLOL
     Dosage: 5 MILLIGRAM
     Route: 048
     Dates: end: 20010714
  100. METOCLOPRAMIDE. [Suspect]
     Active Substance: METOCLOPRAMIDE
     Indication: NAUSEA
     Dosage: UNK UNK, QD
     Route: 048
  101. FRAGMIN [Suspect]
     Active Substance: DALTEPARIN SODIUM
     Dosage: UNK
     Route: 058
     Dates: start: 20010703, end: 20010714
  102. CIPROFLOXACIN HYDROCHLORIDE. [Suspect]
     Active Substance: CIPROFLOXACIN HYDROCHLORIDE
     Dosage: 250 MILLIGRAM, BID (500 MG, QD), DOSE DECREASED FROM 80 TO 40 MG DAILY
     Route: 048
     Dates: start: 20010710, end: 20010711
  103. DIGOXIN. [Suspect]
     Active Substance: DIGOXIN
     Dosage: UNK
     Route: 048
     Dates: start: 20010703
  104. ZAROXOLYN [Suspect]
     Active Substance: METOLAZONE
     Indication: HYPERTENSION
     Dosage: 2 MILLIGRAM, QD
     Route: 048
     Dates: start: 20010712, end: 20010713
  105. MOLSIDOMINE [Suspect]
     Active Substance: MOLSIDOMINE
     Dosage: 16 MG, EVERY 12 DAYS
     Route: 048
     Dates: start: 20010703
  106. DIAZEPAM. [Suspect]
     Active Substance: DIAZEPAM
     Indication: RESTLESSNESS
     Dosage: 15 MILLIGRAM, QD (TOTAL DAILY DOSE RANGED FROM 1376.8 MG TO 2065.2 MG)
     Route: 048
     Dates: start: 20010616, end: 20010703
  107. METFORMIN HYDROCHLORIDE. [Suspect]
     Active Substance: METFORMIN HYDROCHLORIDE
     Indication: DIABETES MELLITUS
     Dosage: 750 MILLIGRAM, QD
     Route: 048
     Dates: end: 20010714
  108. PANTOZOL [Suspect]
     Active Substance: PANTOPRAZOLE SODIUM
     Indication: DYSPNOEA
     Dosage: 50 MILLIGRAM, QD
     Route: 042
     Dates: start: 20010703, end: 20010703
  109. SORTIS [Suspect]
     Active Substance: ATORVASTATIN
     Indication: HYPERLIPIDAEMIA
     Dosage: 20 MILLIGRAM, QD, EVERY 18 DAYS
     Route: 048
     Dates: start: 20010616, end: 20010703
  110. PANTOPRAZOLE [Suspect]
     Active Substance: PANTOPRAZOLE
     Indication: PROPHYLAXIS
     Dosage: 40 MG, 1D (DECREASED FROM 80 TO 40)
     Route: 048
     Dates: start: 20010616, end: 20010714
  111. PANTOPRAZOLE [Suspect]
     Active Substance: PANTOPRAZOLE
     Dosage: 80 MILLIGRAM, QD
     Route: 048
     Dates: start: 20010616, end: 20010714
  112. PANTOPRAZOLE [Suspect]
     Active Substance: PANTOPRAZOLE
     Dosage: 80 MILLIGRAM, QD
     Route: 048
     Dates: start: 20010616
  113. DIGOXIN. [Suspect]
     Active Substance: DIGOXIN
     Indication: RESTLESSNESS
     Dosage: 5 MILLIGRAM
     Dates: start: 20010616, end: 20010703
  114. NOVODIGAL (DIGOXIN) [Suspect]
     Active Substance: DIGOXIN
     Indication: CORONARY ARTERY DISEASE
     Dosage: 1 DF, DAILY
     Route: 048
     Dates: start: 20010703, end: 20010714
  115. POTASSIUM CHLORIDE. [Concomitant]
     Active Substance: POTASSIUM CHLORIDE
     Indication: ELECTROLYTE IMBALANCE
     Dosage: DOSE STATED AS 2. NO UNITS PROVIDED
     Route: 048
     Dates: start: 20010703, end: 20010714
  116. GLIMEPIRIDE. [Concomitant]
     Active Substance: GLIMEPIRIDE
     Dosage: 3 MILLIGRAM, QD (3 MG, UNK, EVERY 18 DAYS)
     Route: 048
     Dates: start: 20010616, end: 20010703
  117. METFORMIN [Suspect]
     Active Substance: METFORMIN HYDROCHLORIDE
     Indication: DIABETES MELLITUS
     Dosage: 250 MILLIGRAM, QD,250 MG, EVERY 29 DAYS
     Route: 048
     Dates: start: 20010616, end: 20010714
  118. DRIED YEAST [Suspect]
     Active Substance: YEAST
     Dosage: 100 MILLIGRAM
     Route: 048
     Dates: start: 20010711, end: 20010714
  119. NORVASC [Suspect]
     Active Substance: AMLODIPINE BESYLATE
     Dosage: 5 MILLIGRAM, QD
     Route: 048
     Dates: start: 20010703, end: 20010714
  120. CIPROFLOXACIN HYDROCHLORIDE. [Suspect]
     Active Substance: CIPROFLOXACIN HYDROCHLORIDE
     Indication: CHOLECYSTITIS
     Dosage: 500 MILLIGRAM, QD
     Route: 048
     Dates: start: 20010620
  121. DIGOXIN. [Suspect]
     Active Substance: DIGOXIN
     Dosage: UNK MILLIGRAM
     Route: 048
     Dates: start: 20010703, end: 20010714
  122. ROCEPHIN [Suspect]
     Active Substance: CEFTRIAXONE SODIUM
     Indication: PYREXIA
     Dosage: 1 GRAM, BID, (2G, QD),INTRAVENOUS
     Route: 042
     Dates: start: 20010629, end: 20010703
  123. CEFTRIAXONE SODIUM. [Suspect]
     Active Substance: CEFTRIAXONE SODIUM
     Indication: PYREXIA
     Dosage: 1 GRAM, BID
     Route: 042
     Dates: start: 20010703
  124. IRENAT [Suspect]
     Active Substance: SODIUM PERCHLORATE
     Indication: HYPERTHYROIDISM
     Dosage: 688 MILLIGRAM, (TOTAL DAILY DOSE RANGED FROM 1376.8 MG TO
     Route: 048
     Dates: start: 20010618, end: 20010714
  125. RAMIPRIL. [Suspect]
     Active Substance: RAMIPRIL
     Dosage: 10 MILLIGRAM, QD/FREQUENCY EVERY 29 DAY
     Route: 048
     Dates: start: 20010616, end: 20010714
  126. IRENAT [Suspect]
     Active Substance: SODIUM PERCHLORATE
     Indication: HYPERTHYROIDISM
     Dosage: 688 MG, UNK(TOTAL DAILY DOSE RANGED FROM 1376.8 MG TO 2065.2 MG
     Route: 048
     Dates: start: 20010618, end: 20010714
  127. HALDOL [Suspect]
     Active Substance: HALOPERIDOL
     Indication: RESTLESSNESS
     Dosage: UNK
     Route: 048
     Dates: start: 20010713, end: 20010713
  128. HALDOL [Suspect]
     Active Substance: HALOPERIDOL
     Dosage: 3 GTT DROPS
     Route: 048
     Dates: start: 20010713, end: 20010714
  129. PREDNISONE. [Suspect]
     Active Substance: PREDNISONE
     Indication: RESTLESSNESS
     Dosage: 50 MILLIGRAM, QD
     Route: 048
     Dates: start: 20010703, end: 20010703
  130. PREDNISONE. [Suspect]
     Active Substance: PREDNISONE
     Indication: DYSPNOEA
  131. PERENTEROL [Suspect]
     Active Substance: SACCHAROMYCES CEREVISIAE
     Dosage: 100 MG, UNK, 100 TO 300 MG
     Route: 048
     Dates: start: 20010711, end: 20010714
  132. POTASSIUM [Concomitant]
     Active Substance: POTASSIUM
     Indication: ELECTROLYTE IMBALANCE
     Dosage: 1500 MILLIGRAM, BID
     Route: 048
     Dates: start: 20010703, end: 20010714

REACTIONS (14)
  - Toxic epidermal necrolysis [Fatal]
  - Respiratory disorder [Fatal]
  - Multiple organ dysfunction syndrome [Fatal]
  - Cholelithiasis [Fatal]
  - Cholecystitis [Fatal]
  - Restlessness [Fatal]
  - Blister [Fatal]
  - Condition aggravated [Fatal]
  - Diarrhoea [Fatal]
  - Erythema [Fatal]
  - Electrolyte imbalance [Fatal]
  - Dermatitis exfoliative [Fatal]
  - Hyperthyroidism [Fatal]
  - Nausea [Fatal]

NARRATIVE: CASE EVENT DATE: 20010704
